FAERS Safety Report 7328983-0 (Version None)
Quarter: 2011Q1

REPORT INFORMATION
  Report Type: 
  Country: None (occurrence: None)
  Receive Date: 20110303
  Receipt Date: 20110223
  Transmission Date: 20110831
  Serious: Yes (Hospitalization)
  Sender: FDA-Public Use
  Company Number: US-SANOFI-AVENTIS-2011SA012329

PATIENT
  Age: 79 Year
  Sex: Male

DRUGS (7)
  1. PLAVIX [Concomitant]
  2. IRON [Concomitant]
  3. ASPIRIN [Concomitant]
  4. LANTUS [Suspect]
     Indication: TYPE 2 DIABETES MELLITUS
     Dosage: DOSE:55 UNIT(S)
     Route: 058
     Dates: start: 20070101, end: 20101201
  5. SOLOSTAR [Suspect]
     Indication: TYPE 2 DIABETES MELLITUS
     Dates: start: 20070101
  6. ALL OTHER THERAPEUTIC PRODUCTS [Concomitant]
  7. LANTUS [Suspect]
     Dosage: DOSE:55 UNIT(S)
     Route: 058
     Dates: start: 20110101

REACTIONS (2)
  - URINARY TRACT INFECTION [None]
  - PNEUMONIA [None]
